FAERS Safety Report 10063366 (Version 1)
Quarter: 2014Q2

REPORT INFORMATION
  Report Type: Spontaneous
  Country: US (occurrence: US)
  Receive Date: 20140407
  Receipt Date: 20140407
  Transmission Date: 20141212
  Serious: Yes (Hospitalization)
  Sender: FDA-Public Use
  Company Number: US-B.I. PHARMACEUTICALS,INC./RIDGEFIELD-2014-BI-14552BP

PATIENT
  Age: 68 Year
  Sex: Female
  Weight: 57 kg

DRUGS (1)
  1. COMBIVENT [Suspect]
     Indication: DYSPNOEA
     Dosage: DOSE PER APPLICATION : 18 MCG / 103 MCG; DAILY DOSE: 144 MCG/824 MCG
     Route: 055

REACTIONS (3)
  - Ligament operation [Recovered/Resolved]
  - Fall [Recovered/Resolved]
  - Off label use [Unknown]
